FAERS Safety Report 19016601 (Version 2)
Quarter: 2021Q2

REPORT INFORMATION
  Report Type: Spontaneous
  Country: US (occurrence: US)
  Receive Date: 20210317
  Receipt Date: 20210615
  Transmission Date: 20210717
  Serious: No
  Sender: FDA-Public Use
  Company Number: US-GLOBAL BLOOD THERAPEUTICS INC-US-GBT-21-00548

PATIENT
  Sex: Female

DRUGS (3)
  1. OXBRYTA [Suspect]
     Active Substance: VOXELOTOR
     Indication: SICKLE CELL DISEASE
     Route: 048
     Dates: start: 20210122
  2. FENTANYL. [Concomitant]
     Active Substance: FENTANYL
     Indication: PRODUCT USED FOR UNKNOWN INDICATION
     Dosage: NOT PROVIDED
  3. OXYCODONE [Concomitant]
     Active Substance: OXYCODONE
     Indication: PRODUCT USED FOR UNKNOWN INDICATION
     Dosage: NOT PROVIDED

REACTIONS (12)
  - Nausea [Not Recovered/Not Resolved]
  - Appetite disorder [Not Recovered/Not Resolved]
  - Fatigue [Unknown]
  - Vomiting [Unknown]
  - Agitation [Not Recovered/Not Resolved]
  - Taste disorder [Not Recovered/Not Resolved]
  - Product dose omission issue [Unknown]
  - Feeling cold [Unknown]
  - Pain [Unknown]
  - Restlessness [Not Recovered/Not Resolved]
  - Feeling abnormal [Not Recovered/Not Resolved]
  - Insomnia [Not Recovered/Not Resolved]

NARRATIVE: CASE EVENT DATE: 2021
